FAERS Safety Report 12045909 (Version 1)
Quarter: 2016Q1

REPORT INFORMATION
  Report Type: Spontaneous
  Country: FR (occurrence: FR)
  Receive Date: 20160208
  Receipt Date: 20160208
  Transmission Date: 20160526
  Serious: Yes (Congenital Anomaly)
  Sender: FDA-Public Use
  Company Number: FR-SA-2016SA018535

PATIENT

DRUGS (10)
  1. LOSARTAN POTASSIUM. [Suspect]
     Active Substance: LOSARTAN POTASSIUM
     Route: 064
     Dates: start: 20141113, end: 20141217
  2. ASPEGIC [Suspect]
     Active Substance: ASPIRIN DL-LYSINE
     Route: 064
     Dates: start: 20141113, end: 20150511
  3. LOXEN [Suspect]
     Active Substance: NICARDIPINE HYDROCHLORIDE
     Route: 064
     Dates: start: 20141113, end: 20150511
  4. TRANDATE [Suspect]
     Active Substance: LABETALOL HYDROCHLORIDE
     Route: 064
     Dates: start: 20150115, end: 20150511
  5. PLAQUENIL [Suspect]
     Active Substance: HYDROXYCHLOROQUINE SULFATE
     Route: 064
     Dates: start: 20141113, end: 20150511
  6. CELLCEPT [Suspect]
     Active Substance: MYCOPHENOLATE MOFETIL\MYCOPHENOLATE MOFETIL HYDROCHLORIDE
     Route: 064
     Dates: start: 20141113, end: 20151217
  7. CORTANCYL [Suspect]
     Active Substance: PREDNISONE
     Route: 064
     Dates: start: 20141113, end: 20150511
  8. LOVENOX [Suspect]
     Active Substance: ENOXAPARIN SODIUM
     Route: 064
     Dates: start: 20141113, end: 20150511
  9. LASILIX [Suspect]
     Active Substance: FUROSEMIDE
     Route: 064
     Dates: start: 20141217, end: 20150511
  10. IMUREL [Suspect]
     Active Substance: AZATHIOPRINE SODIUM
     Route: 064
     Dates: start: 20141113, end: 20150511

REACTIONS (3)
  - Pierre Robin syndrome [Not Recovered/Not Resolved]
  - Polyhydramnios [Not Recovered/Not Resolved]
  - Foetal exposure during pregnancy [Unknown]

NARRATIVE: CASE EVENT DATE: 20150416
